FAERS Safety Report 5138755-3 (Version None)
Quarter: 2006Q4

REPORT INFORMATION
  Report Type: 
  Country: None (occurrence: None)
  Receive Date: 20061026
  Receipt Date: 20061026
  Transmission Date: 20070319
  Serious: Yes (Other)
  Sender: FDA-Public Use
  Company Number: None

PATIENT
  Age: 22 Year
  Sex: Female
  Weight: 136.0791 kg

DRUGS (1)
  1. DEPO-PROVERA [Suspect]
     Indication: CONTRACEPTION
     Dosage: 1 SHOT  EVERY 3 MONTHS  IM
     Route: 030
     Dates: start: 20020613, end: 20030314

REACTIONS (8)
  - AMNESIA [None]
  - BACK PAIN [None]
  - DISTURBANCE IN ATTENTION [None]
  - DIZZINESS [None]
  - HEADACHE [None]
  - HYPOTHYROIDISM [None]
  - MENSTRUATION IRREGULAR [None]
  - NECK PAIN [None]
